FAERS Safety Report 7437992-2 (Version None)
Quarter: 2011Q2

REPORT INFORMATION
  Report Type: 
  Country: None (occurrence: None)
  Receive Date: 20110420
  Receipt Date: 20010407
  Transmission Date: 20111010
  Serious: Yes (Hospitalization)
  Sender: FDA-Public Use
  Company Number: 2011MA003537

PATIENT
  Age: 60 Year
  Sex: Female

DRUGS (9)
  1. MIDAZOLAM [Concomitant]
  2. PROPOFOL [Concomitant]
  3. METHYLPREDNISOLONE [Concomitant]
  4. SUFENTANIL [Concomitant]
  5. HYDROXYZINE [Suspect]
     Dosage: 100 MG, 1X, IV
     Route: 042
  6. LOSARTAN [Concomitant]
  7. FENOFIBRATE [Concomitant]
  8. LORAZEPAM [Concomitant]
  9. SEROFLUVARIE [Concomitant]

REACTIONS (1)
  - ANAPHYLACTIC REACTION [None]
